FAERS Safety Report 23150730 (Version 1)
Quarter: 2023Q4

REPORT INFORMATION
  Report Type: Report from Study
  Country: US (occurrence: US)
  Receive Date: 20231106
  Receipt Date: 20231106
  Transmission Date: 20240109
  Serious: Yes (Other)
  Sender: FDA-Public Use
  Company Number: US-ABBVIE-5395181

PATIENT
  Sex: Female

DRUGS (1)
  1. SKYRIZI [Suspect]
     Active Substance: RISANKIZUMAB-RZAA
     Indication: Psoriatic arthropathy
     Route: 058
     Dates: start: 20230311, end: 20230821

REACTIONS (7)
  - Pain [Unknown]
  - Unevaluable event [Unknown]
  - Psoriasis [Unknown]
  - Red blood cell sedimentation rate increased [Unknown]
  - Monocyte count increased [Unknown]
  - Mean platelet volume increased [Unknown]
  - Blood thyroid stimulating hormone decreased [Unknown]

NARRATIVE: CASE EVENT DATE: 20230101
